FAERS Safety Report 10101703 (Version 1)
Quarter: 2014Q2

REPORT INFORMATION
  Report Type: Spontaneous
  Country: GB (occurrence: GB)
  Receive Date: 20140424
  Receipt Date: 20140424
  Transmission Date: 20141212
  Serious: Yes (Other)
  Sender: FDA-Public Use
  Company Number: GB-JNJFOC-20140412737

PATIENT
  Age: 68 Year
  Sex: Male

DRUGS (7)
  1. EDURANT [Suspect]
     Indication: HIV INFECTION
     Route: 048
     Dates: start: 201402, end: 201404
  2. WARFARIN [Concomitant]
     Indication: DEEP VEIN THROMBOSIS
     Dosage: AS PER INR
     Route: 065
  3. DIAZEPAM [Concomitant]
     Indication: ANXIETY
     Dosage: AT NIGHT, AS NECESSARY.
     Route: 065
     Dates: start: 201311
  4. ZOPICLONE [Concomitant]
     Indication: INSOMNIA
     Dosage: AT NIGHT
     Route: 065
     Dates: start: 201311
  5. TRAMADOL [Concomitant]
     Indication: PAIN
     Dosage: AS NEEDED
     Route: 065
     Dates: start: 201310, end: 201401
  6. SALBUTAMOL [Concomitant]
     Indication: ASTHMA
     Route: 065
  7. ALENDRONIC ACID [Concomitant]
     Indication: OSTEOPOROSIS
     Route: 065

REACTIONS (2)
  - Renal impairment [Recovering/Resolving]
  - Blood creatinine increased [Recovering/Resolving]
